FAERS Safety Report 9772701 (Version 1)
Quarter: 2013Q4

REPORT INFORMATION
  Report Type: Spontaneous
  Country: US (occurrence: US)
  Receive Date: 20131219
  Receipt Date: 20131219
  Transmission Date: 20140711
  Serious: No
  Sender: FDA-Public Use
  Company Number: US-B.I. PHARMACEUTICALS,INC./RIDGEFIELD-2013-BI-41135BP

PATIENT
  Age: 69 Year
  Sex: Female
  Weight: 51 kg

DRUGS (2)
  1. SPIRIVA [Suspect]
     Indication: BRONCHIAL HYPERREACTIVITY
     Dosage: 18 MCG
     Route: 055
     Dates: start: 201308
  2. COMBIVENT [Suspect]
     Indication: BRONCHIAL HYPERREACTIVITY
     Dosage: STRENGTH: 18 MCG / 103 MCG; DAILY DOSE: 144MCG/824MCG
     Route: 055
     Dates: start: 2006, end: 201307

REACTIONS (3)
  - Incorrect route of drug administration [Recovered/Resolved]
  - Off label use [Unknown]
  - Off label use [Unknown]
